FAERS Safety Report 5287210-9 (Version None)
Quarter: 2007Q2

REPORT INFORMATION
  Report Type: 
  Country: None (occurrence: None)
  Receive Date: 20070404
  Receipt Date: 20070323
  Transmission Date: 20071010
  Serious: Yes (Other)
  Sender: FDA-Public Use
  Company Number: US-PFIZER INC-2007012399

PATIENT
  Sex: Male
  Weight: 56.2 kg

DRUGS (3)
  1. LYRICA [Suspect]
     Indication: TEMPORAL LOBE EPILEPSY
  2. TRILEPTAL [Concomitant]
  3. TEMAZEPAM [Concomitant]

REACTIONS (10)
  - CHEST PAIN [None]
  - CONVULSION [None]
  - DISTURBANCE IN ATTENTION [None]
  - HEART RATE DECREASED [None]
  - HEART RATE IRREGULAR [None]
  - LOSS OF CONSCIOUSNESS [None]
  - PALPITATIONS [None]
  - PHYSICAL DISABILITY [None]
  - VISUAL ACUITY REDUCED [None]
  - VISUAL DISTURBANCE [None]
